FAERS Safety Report 22811310 (Version 4)
Quarter: 2023Q4

REPORT INFORMATION
  Report Type: Spontaneous
  Country: JP (occurrence: JP)
  Receive Date: 20230810
  Receipt Date: 20231010
  Transmission Date: 20240110
  Serious: Yes (Other)
  Sender: FDA-Public Use
  Company Number: JP-GLAXOSMITHKLINE-JP2023JPN107128

PATIENT

DRUGS (4)
  1. DAPRODUSTAT [Suspect]
     Active Substance: DAPRODUSTAT
     Indication: Nephrogenic anaemia
     Dosage: 4 MG
     Dates: start: 20230609
  2. DARBEPOETIN ALFA [Concomitant]
     Active Substance: DARBEPOETIN ALFA
     Indication: Nephrogenic anaemia
     Dosage: 60 UG, Q4W, ADMINISTRATION PERIOD WAS UNKNOWN AS IT WAS INTRODUCED AT ANOTHER HOSPITAL
  3. AMLODIPINE BESYLATE [Concomitant]
     Active Substance: AMLODIPINE BESYLATE
     Indication: Hypertension
     Dosage: 2.5 MG, ADMINISTRATION PERIOD WAS UNKNOWN AS THE THERAPY WAS TAKEN OVER FROM ANOTHER HOSPITAL
  4. LOXOPROFEN SODIUM TAPE [Concomitant]
     Dosage: UNK, PRESCRIBED BY AN ORTHOPAEDIST AND DISPENSED ELSEWHERE

REACTIONS (1)
  - Haemorrhage subcutaneous [Recovered/Resolved]

NARRATIVE: CASE EVENT DATE: 20230701
